FAERS Safety Report 7101387-1 (Version None)
Quarter: 2010Q4

REPORT INFORMATION
  Report Type: 
  Country: None (occurrence: None)
  Receive Date: 20101108
  Receipt Date: 20101027
  Transmission Date: 20110411
  Serious: Yes (Other)
  Sender: FDA-Public Use
  Company Number: 021235

PATIENT
  Age: 38 Year
  Sex: Female

DRUGS (6)
  1. LACOSAMIDE [Suspect]
     Indication: LENNOX-GASTAUT SYNDROME
     Dosage: (50 MG) (100 MG) (150 MG) (200 MG)
  2. LACOSAMIDE [Suspect]
     Indication: OFF LABEL USE
     Dosage: (50 MG) (100 MG) (150 MG) (200 MG)
  3. PHENYTOIN [Concomitant]
  4. TOPIRAMATE [Concomitant]
  5. ZONISAMIDE [Concomitant]
  6. CLONAZEPAM [Concomitant]

REACTIONS (2)
  - OFF LABEL USE [None]
  - STATUS EPILEPTICUS [None]
